FAERS Safety Report 7568516-7 (Version None)
Quarter: 2011Q2

REPORT INFORMATION
  Report Type: 
  Country: None (occurrence: None)
  Receive Date: 20110617
  Receipt Date: 20110606
  Transmission Date: 20111010
  Serious: Yes (Hospitalization)
  Sender: FDA-Public Use
  Company Number: 1000021101

PATIENT
  Age: 85 Year
  Sex: Female

DRUGS (10)
  1. NEBIVOLOL HCL [Suspect]
     Dosage: 2.5 MG (2.5 MG,1 IN 1 D),ORAL
     Route: 048
     Dates: start: 20110201
  2. TEMERIT (NEBIVOLOL) (NEBIVOLOL) [Concomitant]
  3. ESCITALOPRAM OXALATE [Concomitant]
  4. XANAX [Concomitant]
  5. OROCAL (CALCIUM CARBONATE) (CALCIUM CARBONATE) [Concomitant]
  6. NOCTAMIDE (LORMETAZEPAM) (LORMETAZEPAM) [Concomitant]
  7. DAFALGAN (PARACETAMOL) (PARACETAMOL) [Concomitant]
  8. DEPAMIDE (VALPROMIDE) [Suspect]
     Dosage: 600 MG (600 MG,1 IN 1 D),ORAL
     Route: 048
     Dates: start: 20110201, end: 20110101
  9. PREVISCAN (FLUINDIONE) (FLUINDIONE) [Concomitant]
  10. SPASFON (PHLOROGLUCINOL) (PHLOROGLUCINOL) [Concomitant]

REACTIONS (4)
  - AFFECTIVE DISORDER [None]
  - CONFUSIONAL STATE [None]
  - DISORIENTATION [None]
  - INTERNATIONAL NORMALISED RATIO INCREASED [None]
